FAERS Safety Report 23341034 (Version 2)
Quarter: 2024Q1

REPORT INFORMATION
  Report Type: Other
  Country: US (occurrence: US)
  Receive Date: 20231227
  Receipt Date: 20240109
  Transmission Date: 20240409
  Serious: Yes (Hospitalization)
  Sender: FDA-Public Use
  Company Number: US-ALVOGEN-2023092791

PATIENT
  Age: 67 Year
  Sex: Female

DRUGS (8)
  1. DAPSONE [Suspect]
     Active Substance: DAPSONE
     Indication: Pyoderma gangrenosum
     Dosage: 7 WEEKS AGO
  2. PREDNISONE [Concomitant]
     Active Substance: PREDNISONE
     Indication: Pyoderma gangrenosum
     Dosage: 7 WEEKS AGO STARTED, 6-WEEK TAPER?DISCONTINUED 4 DAYS PRIOR TO SYMPTOMS?1 WEEK
  3. PREDNISONE [Concomitant]
     Active Substance: PREDNISONE
     Indication: Pyoderma gangrenosum
     Dosage: 2 WEEK?WITH 10 MG REDUCTION EACH WEEK
  4. PREDNISONE [Concomitant]
     Active Substance: PREDNISONE
     Indication: Pyoderma gangrenosum
     Dosage: 3 WEEK
  5. PREDNISONE [Concomitant]
     Active Substance: PREDNISONE
     Indication: Pyoderma gangrenosum
     Dosage: 4 WEEK
  6. PREDNISONE [Concomitant]
     Active Substance: PREDNISONE
     Indication: Pyoderma gangrenosum
     Dosage: 5 WEEK
  7. PREDNISONE [Concomitant]
     Active Substance: PREDNISONE
     Indication: Pyoderma gangrenosum
     Dosage: 6 WEEK
  8. LEVOTHYROXINE [Concomitant]
     Active Substance: LEVOTHYROXINE
     Indication: Product used for unknown indication

REACTIONS (4)
  - Hepatitis cholestatic [Unknown]
  - Granulomatous liver disease [Unknown]
  - Liver injury [Unknown]
  - Off label use [Unknown]
